FAERS Safety Report 4446387-5 (Version None)
Quarter: 2004Q3

REPORT INFORMATION
  Report Type: 
  Country: None (occurrence: None)
  Receive Date: 20040903
  Receipt Date: 20040830
  Transmission Date: 20050211
  Serious: Yes (Death)
  Sender: FDA-Public Use
  Company Number: USA-2003-0011714

PATIENT
  Age: 47 Year
  Sex: Male
  Weight: 84.4 kg

DRUGS (7)
  1. OXYCODONE HCL [Suspect]
  2. FENTANYL [Suspect]
  3. DIAZEPAM [Suspect]
  4. ALPRAZOLAM [Suspect]
  5. ETHANOL (ETHANOL) [Suspect]
  6. DEMEROL [Concomitant]
  7. XANAX [Concomitant]

REACTIONS (10)
  - ATHEROSCLEROSIS [None]
  - CARDIOMEGALY [None]
  - CORONARY ARTERY DISEASE [None]
  - HAEMORRHAGE [None]
  - OESOPHAGEAL ULCER [None]
  - OVERDOSE [None]
  - POLYSUBSTANCE ABUSE [None]
  - PULMONARY OEDEMA [None]
  - RESPIRATORY TRACT CONGESTION [None]
  - VOMITING [None]
